FAERS Safety Report 6212310-6 (Version None)
Quarter: 2009Q2

REPORT INFORMATION
  Report Type: 
  Country: None (occurrence: None)
  Receive Date: 20090529
  Receipt Date: 20090522
  Transmission Date: 20091009
  Serious: Yes (Death, Other)
  Sender: FDA-Public Use
  Company Number: 2009JP003043

PATIENT
  Age: 62 Year
  Sex: Male

DRUGS (13)
  1. TACROLIMUS [Suspect]
     Indication: LIVER TRANSPLANT
  2. SIMULECT [Concomitant]
  3. METHYLPREDNISOLONE [Concomitant]
  4. STEROID [Concomitant]
  5. PREDNISOLONE [Concomitant]
  6. CEFTIZOXIME [Concomitant]
  7. LEVOFLOXACIN [Concomitant]
  8. RANITIDINE (RANITDINE) [Concomitant]
  9. NYSTATIN (NYSTATIN) SYRUP [Concomitant]
  10. LINEZOLID [Concomitant]
  11. DEXAMETHASONE TAB [Concomitant]
  12. TRIMETHORPIN SULFAMETHOXAZOLE (SULFAMETHOXAZOLE, TRIMETHOPRIM) [Concomitant]
  13. DEXAMETHASONE TAB [Concomitant]

REACTIONS (9)
  - CARDIAC VALVE VEGETATION [None]
  - CEREBRAL INFARCTION [None]
  - ENTEROCOCCAL INFECTION [None]
  - HERPES ZOSTER [None]
  - MULTI-ORGAN FAILURE [None]
  - PANCYTOPENIA [None]
  - PNEUMONIA [None]
  - SEPSIS [None]
  - STEVENS-JOHNSON SYNDROME [None]
